FAERS Safety Report 21473531 (Version 1)
Quarter: 2022Q4

REPORT INFORMATION
  Report Type: Spontaneous
  Country: JP (occurrence: JP)
  Receive Date: 20221018
  Receipt Date: 20221018
  Transmission Date: 20230113
  Serious: Yes (Other)
  Sender: FDA-Public Use
  Company Number: JP-NOVARTISPH-NVSJ2022JP099191

PATIENT
  Age: 67 Year
  Sex: Male

DRUGS (2)
  1. IMURAN [Suspect]
     Active Substance: AZATHIOPRINE
     Indication: Giant cell arteritis
     Dosage: UNK
     Route: 048
  2. METHOTREXATE [Suspect]
     Active Substance: METHOTREXATE
     Indication: Giant cell arteritis
     Dosage: UNK
     Route: 048

REACTIONS (4)
  - Oesophageal candidiasis [Unknown]
  - Oropharyngeal candidiasis [Unknown]
  - Chest discomfort [Recovering/Resolving]
  - Product use in unapproved indication [Unknown]
